FAERS Safety Report 10168740 (Version 1)
Quarter: 2014Q2

REPORT INFORMATION
  Report Type: Spontaneous
  Country: CA (occurrence: CA)
  Receive Date: 20140513
  Receipt Date: 20140513
  Transmission Date: 20141212
  Serious: Yes (Other)
  Sender: FDA-Public Use
  Company Number: CA-ROCHE-1399683

PATIENT
  Age: 40 Year
  Sex: Female

DRUGS (8)
  1. XOLAIR [Suspect]
     Indication: ASTHMA
     Route: 058
     Dates: start: 20120618
  2. XOLAIR [Suspect]
     Route: 058
     Dates: start: 20120807
  3. XOLAIR [Suspect]
     Route: 058
     Dates: start: 20131120
  4. REACTINE (CANADA) [Concomitant]
  5. NASONEX [Concomitant]
  6. ADVAIR [Concomitant]
  7. PATANOL [Concomitant]
  8. CELEXA (CANADA) [Concomitant]

REACTIONS (9)
  - Lymphangitis [Recovering/Resolving]
  - Bronchitis [Unknown]
  - Painful respiration [Unknown]
  - Food allergy [Unknown]
  - Animal bite [Unknown]
  - Inflammation [Unknown]
  - Sinusitis [Unknown]
  - Headache [Unknown]
  - Hypersensitivity [Unknown]
